FAERS Safety Report 10512906 (Version 2)
Quarter: 2015Q1

REPORT INFORMATION
  Report Type: Spontaneous
  Country: CA (occurrence: CA)
  Receive Date: 20141013
  Receipt Date: 20150219
  Transmission Date: 20150720
  Serious: Yes (Other)
  Sender: FDA-Public Use
  Company Number: CA-ABBVIE-14K-028-1294073-00

PATIENT
  Age: 29 Year
  Sex: Male

DRUGS (3)
  1. ENBREL [Suspect]
     Active Substance: ETANERCEPT
     Indication: PSORIATIC ARTHROPATHY
     Route: 058
     Dates: start: 20130307
  2. METHOTREXATE [Suspect]
     Active Substance: METHOTREXATE
     Indication: PRODUCT USED FOR UNKNOWN INDICATION
     Route: 065
  3. HUMIRA [Suspect]
     Active Substance: ADALIMUMAB
     Indication: PRODUCT USED FOR UNKNOWN INDICATION
     Route: 058

REACTIONS (17)
  - Nervous system disorder [Unknown]
  - Skin ulcer [Unknown]
  - Pain in extremity [Unknown]
  - Aphonia [Unknown]
  - Abdominal distension [Unknown]
  - Hypoaesthesia [Unknown]
  - Pruritus [Unknown]
  - Hyperaesthesia [Unknown]
  - Mood swings [Unknown]
  - Drug hypersensitivity [Unknown]
  - Eye pruritus [Unknown]
  - Tinea pedis [Unknown]
  - Insomnia [Unknown]
  - Pruritus [Unknown]
  - Mass [Unknown]
  - Psoriatic arthropathy [Unknown]
  - Nail disorder [Unknown]

NARRATIVE: CASE EVENT DATE: 2014
